FAERS Safety Report 15953073 (Version 1)
Quarter: 2019Q1

REPORT INFORMATION
  Report Type: Spontaneous
  Country: US (occurrence: US)
  Receive Date: 20190212
  Receipt Date: 20190212
  Transmission Date: 20190417
  Serious: Yes (Other)
  Sender: FDA-Public Use
  Company Number: US-PURDUE-USA-2019-0145935

PATIENT

DRUGS (2)
  1. OXYCODONE HYDROCHLORIDE (SIMILAR TO NDA 22-272) [Suspect]
     Active Substance: OXYCODONE HYDROCHLORIDE
     Indication: PAIN MANAGEMENT
  2. OXYCODONE HYDROCHLORIDE (SIMILAR TO NDA 22-272) [Suspect]
     Active Substance: OXYCODONE HYDROCHLORIDE
     Indication: SPINAL PAIN
     Route: 048

REACTIONS (9)
  - Decreased appetite [Unknown]
  - Chest pain [Unknown]
  - Weight increased [Unknown]
  - Benign neoplasm [Unknown]
  - Fatigue [Unknown]
  - Drug effect decreased [Unknown]
  - Leukopenia [Unknown]
  - Constipation [Recovering/Resolving]
  - Alopecia [Unknown]
